FAERS Safety Report 4346788-X (Version None)
Quarter: 2004Q1

REPORT INFORMATION
  Report Type: 
  Country: None (occurrence: None)
  Receive Date: 20040325
  Receipt Date: 20031201
  Transmission Date: 20041129
  Serious: No
  Sender: FDA-Public Use
  Company Number: USA030740728

PATIENT
  Age: 80 Year
  Sex: Female

DRUGS (15)
  1. FORTEO [Suspect]
     Indication: OSTEOPOROSIS
     Dosage: 20 UG/DAY
     Dates: start: 20030701
  2. EVISTA [Suspect]
     Indication: OSTEOPOROSIS
  3. IMIPRAMINE [Concomitant]
  4. VIACTIV [Concomitant]
  5. CITRACAL (CALCIUM CITRATE) [Concomitant]
  6. ASPIRIN [Concomitant]
  7. VITAMIN C [Concomitant]
  8. MULTIVITAMIN [Concomitant]
  9. VITAMIN B-12 [Concomitant]
  10. VITAMIN B NOS [Concomitant]
  11. MAGNESIUM [Concomitant]
  12. ZINC [Concomitant]
  13. FOLIC ACID [Concomitant]
  14. VITAMIN E [Concomitant]
  15. PREDNISONE [Concomitant]

REACTIONS (4)
  - DYSGEUSIA [None]
  - INJECTION SITE HAEMORRHAGE [None]
  - NAUSEA [None]
  - PALLOR [None]
